FAERS Safety Report 9616211 (Version 1)
Quarter: 2013Q4

REPORT INFORMATION
  Report Type: Spontaneous
  Country: US (occurrence: None)
  Receive Date: 20131010
  Receipt Date: 20131010
  Transmission Date: 20140711
  Serious: Yes (Hospitalization)
  Sender: FDA-Public Use
  Company Number: None

PATIENT
  Age: 78 Year
  Sex: Male
  Weight: 93.8 kg

DRUGS (11)
  1. OFATUMAMAB [Suspect]
     Indication: CHRONIC LYMPHOCYTIC LEUKAEMIA
     Dosage: 1000MG  IVQ2M
     Route: 042
     Dates: start: 20130401, end: 20130626
  2. ALEMTUZUMAB [Suspect]
     Indication: CHRONIC LYMPHOCYTIC LEUKAEMIA
     Dates: start: 20130626, end: 20130807
  3. FLOMAX [Concomitant]
  4. LISINOPRIL [Concomitant]
  5. MEPRON [Concomitant]
  6. NICOTINE PATCH [Concomitant]
  7. NITROGLYCERIN [Concomitant]
  8. PRESERVISION LUTEIN [Concomitant]
  9. SIMVASTATIN [Concomitant]
  10. SODIUM CHLORIDE [Concomitant]
  11. TRAMADOL [Concomitant]

REACTIONS (4)
  - Hyponatraemia [None]
  - Back pain [None]
  - Hepatic mass [None]
  - Neuroendocrine carcinoma metastatic [None]
